FAERS Safety Report 19207351 (Version 1)
Quarter: 2021Q2

REPORT INFORMATION
  Report Type: Spontaneous
  Country: KR (occurrence: KR)
  Receive Date: 20210503
  Receipt Date: 20210503
  Transmission Date: 20210717
  Serious: Yes (Other)
  Sender: FDA-Public Use
  Company Number: KR-FRESENIUS KABI-FK202104425

PATIENT
  Age: 55 Year
  Sex: Female

DRUGS (4)
  1. DEXAMETHASONE INJECTION (MANUFACTURER UNKNOWN) [Suspect]
     Active Substance: DEXAMETHASONE
     Indication: NECK PAIN
     Dosage: 5 MG/1ML
     Route: 008
  2. SODIUM CHLORIDE (MANUFACTURER UNKNOWN) [Suspect]
     Active Substance: SODIUM CHLORIDE
     Indication: NECK PAIN
     Route: 008
  3. LIDOCAINE (MANUFACTURER UNKNOWN) [Suspect]
     Active Substance: LIDOCAINE
     Indication: NECK PAIN
     Route: 008
  4. IOHEXOL [Suspect]
     Active Substance: IOHEXOL
     Indication: NECK PAIN
     Route: 008

REACTIONS (1)
  - Pneumorrhachis [Recovering/Resolving]
